FAERS Safety Report 4862668-5 (Version None)
Quarter: 2005Q4

REPORT INFORMATION
  Report Type: 
  Country: None (occurrence: None)
  Receive Date: 20051221
  Receipt Date: 20050817
  Transmission Date: 20060501
  Serious: Yes (Hospitalization, Disabling)
  Sender: FDA-Public Use
  Company Number: US-MERCK-0508USA03253

PATIENT
  Age: 39 Year
  Sex: Male
  Weight: 98 kg

DRUGS (3)
  1. VIOXX [Suspect]
     Indication: ARTHRALGIA
     Route: 048
     Dates: start: 20040101, end: 20040801
  2. VIOXX [Suspect]
     Route: 065
  3. ZOCOR [Concomitant]
     Route: 065

REACTIONS (9)
  - ACUTE MYOCARDIAL INFARCTION [None]
  - ARTERIOSCLEROSIS CORONARY ARTERY [None]
  - ARTHROPATHY [None]
  - CHEST PAIN [None]
  - JOINT ADHESION [None]
  - JOINT SWELLING [None]
  - LOOSE BODY IN JOINT [None]
  - MENISCUS LESION [None]
  - OSTEOARTHRITIS [None]
